FAERS Safety Report 23521981 (Version 1)
Quarter: 2024Q1

REPORT INFORMATION
  Report Type: Spontaneous
  Country: US (occurrence: US)
  Receive Date: 20240214
  Receipt Date: 20240214
  Transmission Date: 20240409
  Serious: No
  Sender: FDA-Public Use
  Company Number: US-GLENMARK PHARMACEUTICALS-2023GMK086447

PATIENT

DRUGS (2)
  1. OLMESARTAN MEDOXOMIL [Suspect]
     Active Substance: OLMESARTAN MEDOXOMIL
     Indication: Blood pressure management
     Dosage: UNK (ORANGE BOTTLE)
     Route: 065
  2. OLMESARTAN MEDOXOMIL [Suspect]
     Active Substance: OLMESARTAN MEDOXOMIL
     Dosage: UNK (WHITE BOTTLE)
     Route: 065

REACTIONS (6)
  - Tongue discomfort [Unknown]
  - Product dose omission issue [Unknown]
  - Product dispensing error [Unknown]
  - Product quality issue [Unknown]
  - Product odour abnormal [Unknown]
  - Product physical issue [Unknown]
